FAERS Safety Report 12721715 (Version 1)
Quarter: 2016Q3

REPORT INFORMATION
  Report Type: Other
  Country: US (occurrence: US)
  Receive Date: 20160907
  Receipt Date: 20160907
  Transmission Date: 20161109
  Serious: No
  Sender: FDA-Public Use
  Company Number: US-COL_21428_2015

PATIENT
  Sex: Male

DRUGS (1)
  1. COLGATE TOTAL WHITENING [Suspect]
     Active Substance: SODIUM FLUORIDE\TRICLOSAN
     Indication: PRODUCT USED FOR UNKNOWN INDICATION
     Dosage: COVERED ABOUT HALF THE HEAD OF TOOTHBRUSH/ OD OR BID/
     Route: 048
     Dates: start: 201510, end: 201511

REACTIONS (3)
  - Gingival pain [Recovered/Resolved]
  - Chapped lips [Recovered/Resolved]
  - Cheilitis [Recovered/Resolved]

NARRATIVE: CASE EVENT DATE: 2015
